FAERS Safety Report 15879173 (Version 1)
Quarter: 2019Q1

REPORT INFORMATION
  Report Type: Report from Study
  Country: US (occurrence: US)
  Receive Date: 20190128
  Receipt Date: 20190128
  Transmission Date: 20190417
  Serious: Yes (Other)
  Sender: FDA-Public Use
  Company Number: US-ROCHE-2248033

PATIENT
  Age: 46 Year
  Sex: Male

DRUGS (3)
  1. VEMURAFENIB. [Suspect]
     Active Substance: VEMURAFENIB
     Indication: HAIRY CELL LEUKAEMIA
     Route: 048
  2. VEMURAFENIB. [Suspect]
     Active Substance: VEMURAFENIB
     Route: 048
  3. PENTOSTATIN. [Concomitant]
     Active Substance: PENTOSTATIN
     Route: 065

REACTIONS (3)
  - Off label use [Unknown]
  - Pancytopenia [Unknown]
  - Intentional product use issue [Unknown]
